FAERS Safety Report 17662869 (Version 1)
Quarter: 2020Q2

REPORT INFORMATION
  Report Type: Other
  Country: CZ (occurrence: CZ)
  Receive Date: 20200413
  Receipt Date: 20200413
  Transmission Date: 20200713
  Serious: Yes (Hospitalization, Other)
  Sender: FDA-Public Use
  Company Number: CZ-EMD SERONO-9156667

PATIENT
  Age: 83 Year
  Sex: Female

DRUGS (11)
  1. HUMULIN N [Suspect]
     Active Substance: INSULIN HUMAN
     Dosage: CHANGE IN DOSAGE (UNSPECIFIED)
  2. HUMULIN N [Suspect]
     Active Substance: INSULIN HUMAN
     Dosage: 50 UNITS
  3. HUMULIN N [Suspect]
     Active Substance: INSULIN HUMAN
     Indication: DIABETES MELLITUS
     Dosage: 16 UNITS
     Dates: start: 1990
  4. HUMULIN N [Suspect]
     Active Substance: INSULIN HUMAN
     Dosage: 92 UNITS
  5. OMEPRAZOLE. [Concomitant]
     Active Substance: OMEPRAZOLE
     Indication: PRODUCT USED FOR UNKNOWN INDICATION
  6. METFORMIN [Suspect]
     Active Substance: METFORMIN HYDROCHLORIDE
     Indication: DIABETES MELLITUS
     Dosage: UNKNOWN DOSAGE
     Dates: start: 1990
  7. SARTAN [Concomitant]
     Active Substance: LOSARTAN POTASSIUM
     Indication: PRODUCT USED FOR UNKNOWN INDICATION
  8. GLIMEPIRIDE. [Suspect]
     Active Substance: GLIMEPIRIDE
     Indication: DIABETES MELLITUS
     Dates: start: 1990
  9. METFORMIN [Suspect]
     Active Substance: METFORMIN HYDROCHLORIDE
     Dosage: DOSE UPGRADED
  10. HUMULIN N [Suspect]
     Active Substance: INSULIN HUMAN
     Dosage: 85 UNITS
  11. HUMULIN N [Suspect]
     Active Substance: INSULIN HUMAN
     Dosage: 45 UNITS

REACTIONS (5)
  - Treatment noncompliance [Recovered/Resolved]
  - Diabetic retinopathy [Unknown]
  - Diabetes mellitus inadequate control [Unknown]
  - Pyelonephritis [Unknown]
  - Mitral valve disease [Unknown]

NARRATIVE: CASE EVENT DATE: 201909
